FAERS Safety Report 4787104-9 (Version None)
Quarter: 2005Q3

REPORT INFORMATION
  Report Type: 
  Country: None (occurrence: None)
  Receive Date: 20050930
  Receipt Date: 20050210
  Transmission Date: 20060218
  Serious: Yes (Other)
  Sender: FDA-Public Use
  Company Number: 2005FR-00303

PATIENT
  Age: 56 Year
  Sex: Female

DRUGS (2)
  1. FLUOXETINE HYDROCHLORIDE [Suspect]
     Indication: DEPRESSION
     Dosage: 20 MG OD, ORAL
     Route: 048
     Dates: start: 20040507
  2. THYROXINE [Concomitant]
     Indication: HYPOTHYROIDISM
     Dosage: 100MCG
     Route: 048
     Dates: start: 20040717

REACTIONS (5)
  - ARRHYTHMIA [None]
  - CERVICAL VERTEBRAL FRACTURE [None]
  - DIZZINESS [None]
  - FALL [None]
  - SKULL FRACTURE [None]
